FAERS Safety Report 9644677 (Version 1)
Quarter: 2013Q4

REPORT INFORMATION
  Report Type: Spontaneous
  Country: FR (occurrence: FR)
  Receive Date: 20131025
  Receipt Date: 20131025
  Transmission Date: 20140711
  Serious: Yes (Hospitalization, Other)
  Sender: FDA-Public Use
  Company Number: FR-JNJFOC-20131009064

PATIENT
  Age: 79 Year
  Sex: Female

DRUGS (1)
  1. ACETAMINOPHEN AND CODIENE [Suspect]
     Indication: BACK PAIN
     Route: 065

REACTIONS (2)
  - Vascular pseudoaneurysm [Unknown]
  - Drug effect decreased [Unknown]
